FAERS Safety Report 7451839-X (Version None)
Quarter: 2011Q2

REPORT INFORMATION
  Report Type: 
  Country: None (occurrence: None)
  Receive Date: 20110502
  Receipt Date: 20100526
  Transmission Date: 20111010
  Serious: No
  Sender: FDA-Public Use
  Company Number: US-ASTRAZENECA-2010SE24102

PATIENT
  Age: 62 Year
  Sex: Female
  Weight: 95.3 kg

DRUGS (3)
  1. ATENOLOL [Concomitant]
  2. ENALAPRIL MALEATE [Concomitant]
  3. NEXIUM [Suspect]
     Indication: GASTROOESOPHAGEAL REFLUX DISEASE
     Route: 048
     Dates: start: 20010101

REACTIONS (2)
  - TREMOR [None]
  - BONE LOSS [None]
